FAERS Safety Report 11445733 (Version 1)
Quarter: 2015Q3

REPORT INFORMATION
  Report Type: Spontaneous
  Country: RU (occurrence: RU)
  Receive Date: 20150902
  Receipt Date: 20150902
  Transmission Date: 20151125
  Serious: Yes (Hospitalization, Other)
  Sender: FDA-Public Use
  Company Number: RU-PFIZER INC-2015282885

PATIENT
  Sex: Male

DRUGS (7)
  1. CARDIOMAGNYL [Concomitant]
     Active Substance: ASPIRIN\MAGNESIUM HYDROXIDE
     Indication: MYOCARDIAL INFARCTION
     Dosage: UNK
     Dates: start: 2015
  2. AMPRILAN [Concomitant]
     Active Substance: RAMIPRIL
     Indication: MYOCARDIAL INFARCTION
     Dosage: UNK
     Dates: start: 2015
  3. CONCOR [Concomitant]
     Active Substance: BISOPROLOL FUMARATE
     Indication: MYOCARDIAL INFARCTION
     Dosage: UNK
     Dates: start: 2015
  4. NOLPAZA [Concomitant]
     Active Substance: PANTOPRAZOLE SODIUM
     Indication: MYOCARDIAL INFARCTION
     Dosage: UNK
     Dates: start: 2015
  5. LYRICA [Suspect]
     Active Substance: PREGABALIN
     Indication: BACK PAIN
     Dosage: 4-6 TABLETS OF 300 MG, SOMETIMES MORE, IF POSSIBLE, AT LESS THAN 4 TABLETS - DISCOMFORT
     Dates: start: 2013
  6. ATORVASTATIN [Concomitant]
     Active Substance: ATORVASTATIN
     Indication: MYOCARDIAL INFARCTION
     Dosage: UNK
     Dates: start: 2015
  7. CLOPIDOGREL [Concomitant]
     Active Substance: CLOPIDOGREL BISULFATE
     Indication: MYOCARDIAL INFARCTION
     Dosage: UNK
     Dates: start: 2015

REACTIONS (13)
  - Drug dependence [Not Recovered/Not Resolved]
  - Pre-existing condition improved [Unknown]
  - Withdrawal syndrome [Not Recovered/Not Resolved]
  - Therapeutic response unexpected [Unknown]
  - Condition aggravated [Not Recovered/Not Resolved]
  - Myocardial infarction [Recovered/Resolved]
  - Hyperhidrosis [Not Recovered/Not Resolved]
  - Depression [Not Recovered/Not Resolved]
  - Diarrhoea [Not Recovered/Not Resolved]
  - Activities of daily living impaired [Not Recovered/Not Resolved]
  - Intentional overdose [Unknown]
  - Cardiac disorder [Recovered/Resolved]
  - Rhinitis [Not Recovered/Not Resolved]

NARRATIVE: CASE EVENT DATE: 201504
